FAERS Safety Report 6596303-5 (Version None)
Quarter: 2010Q1

REPORT INFORMATION
  Report Type: 
  Country: None (occurrence: None)
  Receive Date: 20100223
  Receipt Date: 20100208
  Transmission Date: 20100710
  Serious: Yes (Hospitalization, Other)
  Sender: FDA-Public Use
  Company Number: JP-PFIZER INC-2009292484

PATIENT
  Sex: Female
  Weight: 53.5 kg

DRUGS (6)
  1. SERTRALINE HCL [Suspect]
     Indication: PANIC DISORDER
     Dosage: 50 MG/DAY
     Route: 048
     Dates: start: 20091007, end: 20091029
  2. SERTRALINE HCL [Suspect]
     Dosage: 25 MG/DAY
     Route: 048
     Dates: start: 20091002, end: 20091006
  3. MYONAL [Concomitant]
     Indication: PERIARTHRITIS
     Dosage: UNK
     Dates: start: 20070101, end: 20091030
  4. PREMARIN [Concomitant]
     Indication: MENOPAUSAL SYMPTOMS
     Dosage: UNK
     Dates: start: 20010101
  5. ZYRTEC [Concomitant]
     Indication: RHINITIS
     Dosage: UNK
     Dates: start: 20090701, end: 20091015
  6. MYSLEE [Concomitant]
     Indication: INSOMNIA
     Dosage: UNK
     Dates: start: 20090201

REACTIONS (1)
  - ERYTHEMA MULTIFORME [None]
